FAERS Safety Report 12688582 (Version 1)
Quarter: 2016Q3

REPORT INFORMATION
  Report Type: Spontaneous
  Country: US (occurrence: None)
  Receive Date: 20160825
  Receipt Date: 20160825
  Transmission Date: 20161109
  Serious: No
  Sender: FDA-Public Use
  Company Number: None

PATIENT

DRUGS (1)
  1. MORPHINE MORPHINE [Suspect]
     Active Substance: MORPHINE

REACTIONS (6)
  - Depressed level of consciousness [None]
  - Respiratory depression [None]
  - Miosis [None]
  - Incorrect dose administered [None]
  - Cyanosis [None]
  - Drug dispensing error [None]

NARRATIVE: CASE EVENT DATE: 2016
